FAERS Safety Report 7734281-3 (Version None)
Quarter: 2011Q3

REPORT INFORMATION
  Report Type: 
  Country: None (occurrence: None)
  Receive Date: 20110907
  Receipt Date: 20110825
  Transmission Date: 20111222
  Serious: Yes (Hospitalization)
  Sender: FDA-Public Use
  Company Number: CA-ABBOTT-11P-028-0851664-00

PATIENT
  Sex: Male

DRUGS (3)
  1. VALPROATE SODIUM [Suspect]
     Indication: PRODUCT USED FOR UNKNOWN INDICATION
  2. VALPROATE SODIUM [Suspect]
  3. DILANTIN [Suspect]
     Indication: PRODUCT USED FOR UNKNOWN INDICATION
     Dates: end: 20101201

REACTIONS (9)
  - DYSARTHRIA [None]
  - ABASIA [None]
  - TOXICITY TO VARIOUS AGENTS [None]
  - CONVULSION [None]
  - MOVEMENT DISORDER [None]
  - LETHARGY [None]
  - ACTIVITIES OF DAILY LIVING IMPAIRED [None]
  - DRUG LEVEL INCREASED [None]
  - APHASIA [None]
